FAERS Safety Report 14434516 (Version 2)
Quarter: 2018Q1

REPORT INFORMATION
  Report Type: Spontaneous
  Country: US (occurrence: US)
  Receive Date: 20180124
  Receipt Date: 20180306
  Transmission Date: 20180509
  Serious: Yes (Hospitalization)
  Sender: FDA-Public Use
  Company Number: US-ALLERGAN-1803484US

PATIENT
  Age: 75 Year
  Sex: Female

DRUGS (2)
  1. ESTRACE [Suspect]
     Active Substance: ESTRADIOL
     Indication: POLYURIA
     Dosage: 1 APPLICATOR 3 TIMES PER WEEK
     Route: 067
     Dates: start: 2014
  2. PROZAC [Concomitant]
     Active Substance: FLUOXETINE HYDROCHLORIDE
     Indication: PRODUCT USED FOR UNKNOWN INDICATION
     Dosage: UNK
     Route: 048

REACTIONS (8)
  - Off label use [Unknown]
  - Pollakiuria [Recovered/Resolved]
  - Back disorder [Recovering/Resolving]
  - Gait disturbance [Recovered/Resolved]
  - Malaise [Recovered/Resolved]
  - Drug ineffective for unapproved indication [Unknown]
  - Nasopharyngitis [Not Recovered/Not Resolved]
  - Memory impairment [Recovered/Resolved]

NARRATIVE: CASE EVENT DATE: 201709
